FAERS Safety Report 5970908-4 (Version None)
Quarter: 2008Q4

REPORT INFORMATION
  Report Type: 
  Country: None (occurrence: None)
  Receive Date: 20081128
  Receipt Date: 20081118
  Transmission Date: 20090506
  Serious: Yes (Other)
  Sender: FDA-Public Use
  Company Number: PHHY2008AU28798

PATIENT
  Sex: Female

DRUGS (1)
  1. ESTRADERM [Suspect]
     Dosage: 37.5 MCG
     Route: 062

REACTIONS (4)
  - DEVICE FAILURE [None]
  - HOT FLUSH [None]
  - MALAISE [None]
  - PALPITATIONS [None]
